FAERS Safety Report 7989843 (Version 2)
Quarter: 2013Q2

REPORT INFORMATION
  Report Type: Spontaneous
  Country: US (occurrence: US)
  Receive Date: 20110614
  Receipt Date: 20130505
  Transmission Date: 20140414
  Serious: Yes (Hospitalization)
  Sender: FDA-Public Use
  Company Number: US-B.I. PHARMACEUTICALS,INC./RIDGEFIELD-2011-BP-14373BP

PATIENT
  Sex: Male

DRUGS (7)
  1. FLOMAX CAPSULES [Suspect]
     Indication: BENIGN PROSTATIC HYPERPLASIA
     Dosage: 0.4 MG
     Route: 048
     Dates: start: 2000
  2. SIMVASTATIN [Concomitant]
     Dosage: 40 MG
     Route: 048
  3. PLAVIX [Concomitant]
     Indication: ANTICOAGULANT THERAPY
     Dosage: 75 MG
     Route: 048
  4. ALLOPURINOL [Concomitant]
     Dosage: 100 MG
     Route: 048
  5. CIALIS [Concomitant]
     Dosage: 20 MG
     Route: 048
  6. ASPIRIN [Concomitant]
     Indication: ANTICOAGULANT THERAPY
     Dosage: 40 MG
     Route: 048
  7. TRIMIX-ALPROSTADIL, PAPAVERINE AND PHENTOLAMINE [Concomitant]
     Indication: ERECTILE DYSFUNCTION
     Route: 017

REACTIONS (3)
  - Coronary artery occlusion [Recovered/Resolved]
  - Drug ineffective [Unknown]
  - Product quality issue [Unknown]
